FAERS Safety Report 11046128 (Version 2)
Quarter: 2015Q2

REPORT INFORMATION
  Report Type: Spontaneous
  Country: US (occurrence: US)
  Receive Date: 20150418
  Receipt Date: 20150524
  Transmission Date: 20150821
  Serious: No
  Sender: FDA-Public Use
  Company Number: US-JNJFOC-20140203455

PATIENT
  Sex: Female
  Weight: 48.08 kg

DRUGS (2)
  1. NIZORAL [Suspect]
     Active Substance: KETOCONAZOLE
     Indication: PRURITUS
     Route: 061
     Dates: start: 2013, end: 201312
  2. VITAMIN D [Concomitant]
     Active Substance: CHOLECALCIFEROL
     Route: 048

REACTIONS (4)
  - Pruritus [Not Recovered/Not Resolved]
  - Pain of skin [Unknown]
  - Drug ineffective [Unknown]
  - Swelling [Unknown]

NARRATIVE: CASE EVENT DATE: 2013
